FAERS Safety Report 22728918 (Version 2)
Quarter: 2023Q4

REPORT INFORMATION
  Report Type: Spontaneous
  Country: US (occurrence: US)
  Receive Date: 20230720
  Receipt Date: 20231019
  Transmission Date: 20240109
  Serious: No
  Sender: FDA-Public Use
  Company Number: US-BRISTOL-MYERS SQUIBB COMPANY-2023-102349

PATIENT
  Age: 4 Decade
  Sex: Male
  Weight: 80 kg

DRUGS (1)
  1. NULOJIX [Suspect]
     Active Substance: BELATACEPT
     Indication: Renal transplant

REACTIONS (8)
  - Malaise [Unknown]
  - Depressed mood [Unknown]
  - Drug ineffective [Unknown]
  - Underdose [Unknown]
  - Speech disorder [Unknown]
  - Dysarthria [Unknown]
  - Weight increased [Unknown]
  - Fluid retention [Unknown]
